FAERS Safety Report 7457383-8 (Version None)
Quarter: 2011Q1

REPORT INFORMATION
  Report Type: 
  Country: None (occurrence: None)
  Receive Date: 20110302
  Receipt Date: 20100802
  Transmission Date: 20110831
  Serious: Yes (Hospitalization)
  Sender: FDA-Public Use
  Company Number: 163-21880-09060993

PATIENT
  Age: 63 Year
  Sex: Male
  Weight: 80.3 kg

DRUGS (18)
  1. DEXAMETHASONE [Suspect]
     Indication: PRODUCT USED FOR UNKNOWN INDICATION
     Dosage: 12 MG, 3 IN 1 D, PO, 5 TAB, ONCE A WEEK, PO
     Route: 048
  2. TAMSULOSIN HCL (TAMSULOSIN HYDROCHLORIDE) [Concomitant]
  3. FLEXERIL [Concomitant]
  4. TOPROL-XL [Concomitant]
  5. HYDROCHLOROTHIAZIDE [Concomitant]
  6. TRAZODONE (TRAZODONE) [Concomitant]
  7. MORPHINE [Concomitant]
  8. DARBEPOETIN ALFA (DARBEPOETIN ALFA) [Concomitant]
  9. ACYCLOVIR [Concomitant]
  10. ASPIRIN [Concomitant]
  11. PEPCID [Concomitant]
  12. NYSTATIN-TRIAMCINOLONE (MYCOLOG) [Concomitant]
  13. ZOLEDRONIC ACID [Concomitant]
  14. REVLIMID [Suspect]
     Indication: MULTIPLE MYELOMA
     Dosage: SEE IMAGE
     Route: 048
     Dates: start: 20090501
  15. REVLIMID [Suspect]
     Indication: MULTIPLE MYELOMA
     Dosage: SEE IMAGE
     Route: 048
     Dates: start: 20090601
  16. REVLIMID [Suspect]
     Indication: MULTIPLE MYELOMA
     Dosage: SEE IMAGE
     Route: 048
     Dates: start: 20090901
  17. REVLIMID [Suspect]
     Indication: MULTIPLE MYELOMA
     Dosage: SEE IMAGE
     Route: 048
     Dates: start: 20090801
  18. AZITHROMYCIN [Concomitant]

REACTIONS (9)
  - MUSCLE SPASMS [None]
  - SKIN EXFOLIATION [None]
  - DRUG INTOLERANCE [None]
  - HEADACHE [None]
  - DISEASE PROGRESSION [None]
  - FUNGAL SKIN INFECTION [None]
  - PERIPHERAL SENSORY NEUROPATHY [None]
  - PYREXIA [None]
  - INSOMNIA [None]
